FAERS Safety Report 4737035-5 (Version None)
Quarter: 2005Q3

REPORT INFORMATION
  Report Type: 
  Country: None (occurrence: None)
  Receive Date: 20050804
  Receipt Date: 20050706
  Transmission Date: 20060218
  Serious: Yes (Other)
  Sender: FDA-Public Use
  Company Number: ENTC2005-0205

PATIENT
  Age: 70 Year
  Sex: Male

DRUGS (8)
  1. STALEVO 100 [Suspect]
     Indication: PARKINSON'S DISEASE
     Dosage: 100/25/200 MG QID ORAL
     Route: 048
     Dates: start: 20040924, end: 20041021
  2. REQUIP [Concomitant]
  3. AMANTAN [Concomitant]
  4. SEROXAT [Concomitant]
  5. INDERAL [Concomitant]
  6. FOSAMAX [Concomitant]
  7. LERIVON [Concomitant]
  8. LORAZEPAM [Concomitant]

REACTIONS (4)
  - ANAEMIA [None]
  - CYTOLYTIC HEPATITIS [None]
  - HEPATITIS CHOLESTATIC [None]
  - SMALL INTESTINAL HAEMORRHAGE [None]
